FAERS Safety Report 24117161 (Version 1)
Quarter: 2024Q3

REPORT INFORMATION
  Report Type: Report from Study
  Country: US (occurrence: None)
  Receive Date: 20240722
  Receipt Date: 20240722
  Transmission Date: 20241017
  Serious: Yes (Other)
  Sender: ASTRAZENECA
  Company Number: 2023A137691

PATIENT
  Age: 921 Month
  Sex: Male

DRUGS (2)
  1. CALQUENCE [Suspect]
     Active Substance: ACALABRUTINIB
     Indication: Chronic lymphocytic leukaemia
     Route: 048
  2. HUMAN IMMUNOGLOBULIN G [Concomitant]
     Active Substance: HUMAN IMMUNOGLOBULIN G

REACTIONS (9)
  - Platelet count decreased [Unknown]
  - White blood cell count abnormal [Unknown]
  - Lumbar vertebral fracture [Unknown]
  - Arthritis [Unknown]
  - Balance disorder [Unknown]
  - Contusion [Unknown]
  - Dizziness [Unknown]
  - Lymphoedema [Unknown]
  - Product dose omission issue [Unknown]

NARRATIVE: CASE EVENT DATE: 20230501
